FAERS Safety Report 12914641 (Version 2)
Quarter: 2017Q1

REPORT INFORMATION
  Report Type: Spontaneous
  Country: US (occurrence: US)
  Receive Date: 20161106
  Receipt Date: 20170124
  Transmission Date: 20170428
  Serious: Yes (Other)
  Sender: FDA-Public Use
  Company Number: US-RELYPSA-RLY2016003257

PATIENT
  Sex: Male

DRUGS (2)
  1. VELTASSA [Suspect]
     Active Substance: PATIROMER
     Indication: BLOOD POTASSIUM ABNORMAL
     Dosage: 8.4 G, QD
     Route: 065
     Dates: start: 20160812
  2. VELTASSA [Suspect]
     Active Substance: PATIROMER
     Dosage: 8.4 G, 3 TIMES A WEEK
     Route: 065

REACTIONS (3)
  - Dialysis [Unknown]
  - Blood potassium increased [Recovering/Resolving]
  - Inappropriate schedule of drug administration [Not Recovered/Not Resolved]
